FAERS Safety Report 7274339-9 (Version None)
Quarter: 2011Q1

REPORT INFORMATION
  Report Type: 
  Country: None (occurrence: None)
  Receive Date: 20110204
  Receipt Date: 20101216
  Transmission Date: 20110831
  Serious: Yes (Hospitalization, Other)
  Sender: FDA-Public Use
  Company Number: US-BAYER-201023852NA

PATIENT
  Sex: Female
  Weight: 65.909 kg

DRUGS (9)
  1. FLUOXETINE [Concomitant]
     Indication: DEPRESSION
     Dates: start: 20070101, end: 20090101
  2. YAZ [Suspect]
     Route: 048
     Dates: start: 20060601, end: 20060920
  3. ZOLPIDEM [Concomitant]
     Indication: INSOMNIA
     Dates: start: 20080101, end: 20090101
  4. STRATTERA [Concomitant]
     Indication: ATTENTION DEFICIT/HYPERACTIVITY DISORDER
     Dates: start: 20080503, end: 20080523
  5. ASTELIN [Concomitant]
     Route: 045
  6. NSAID'S [Concomitant]
     Dosage: INTERMITTENT USE
     Dates: start: 20000101, end: 20100101
  7. FOCALIN [Concomitant]
     Indication: ATTENTION DEFICIT/HYPERACTIVITY DISORDER
     Dates: start: 20070101, end: 20090101
  8. VICODIN [Concomitant]
     Dosage: 5/500 MG
     Route: 048
  9. YAZ [Suspect]
     Route: 048
     Dates: start: 20070611, end: 20090829

REACTIONS (8)
  - CONSTIPATION [None]
  - CHOLELITHIASIS [None]
  - BACK PAIN [None]
  - FLATULENCE [None]
  - CHOLECYSTITIS CHRONIC [None]
  - FLANK PAIN [None]
  - ABDOMINAL DISTENSION [None]
  - NAUSEA [None]
